FAERS Safety Report 4499500-8 (Version None)
Quarter: 2004Q4

REPORT INFORMATION
  Report Type: 
  Country: None (occurrence: None)
  Receive Date: 20040928
  Receipt Date: 20040622
  Transmission Date: 20050328
  Serious: No
  Sender: FDA-Public Use
  Company Number: 04P-163-0264508-00

PATIENT
  Sex: Male
  Weight: 58.9676 kg

DRUGS (7)
  1. HUMIRA [Suspect]
     Indication: RHEUMATOID ARTHRITIS
     Dosage: 40 MG, 1 IN 2 WK, SUBCUTANEOUS
     Route: 058
     Dates: start: 20031101
  2. RANITIDINE [Concomitant]
  3. PARACETAMOL [Concomitant]
  4. GALENIC/PARACETAMOL/CODEINE [Concomitant]
  5. CYANOCOBALAMIN [Concomitant]
  6. CYCLOBENZAPRINE [Concomitant]
  7. LANSOPRAZOLE [Concomitant]

REACTIONS (1)
  - DRUG INEFFECTIVE [None]
